FAERS Safety Report 17077256 (Version 2)
Quarter: 2020Q1

REPORT INFORMATION
  Report Type: Spontaneous
  Country: ES (occurrence: ES)
  Receive Date: 20191126
  Receipt Date: 20200103
  Transmission Date: 20200409
  Serious: Yes (Other)
  Sender: FDA-Public Use
  Company Number: ES-MYLANLABS-2019M1114912

PATIENT
  Age: 48 Year
  Sex: Female
  Weight: 76.5 kg

DRUGS (3)
  1. ALPRAZOLAM CINFA [Concomitant]
     Dosage: UNK, 30 COMPRIMIDOS
  2. TARDYFERON [Concomitant]
     Active Substance: FERROUS SULFATE
     Dosage: UNK
  3. IBUPROFEN TABLETS 600MG [Suspect]
     Active Substance: IBUPROFEN
     Indication: HEADACHE
     Dosage: 600 MILLIGRAM
     Route: 048
     Dates: start: 20190912, end: 20190920

REACTIONS (4)
  - Conjunctival haemorrhage [Recovering/Resolving]
  - Rash [Recovering/Resolving]
  - Headache [Recovering/Resolving]
  - Abdominal pain upper [Recovering/Resolving]

NARRATIVE: CASE EVENT DATE: 20190912
